FAERS Safety Report 21266434 (Version 4)
Quarter: 2022Q3

REPORT INFORMATION
  Report Type: Spontaneous
  Country: IN (occurrence: IN)
  Receive Date: 20220829
  Receipt Date: 20220901
  Transmission Date: 20221027
  Serious: Yes (Hospitalization, Other)
  Sender: FDA-Public Use
  Company Number: IN-MLMSERVICE-20220727-3697881-1

PATIENT
  Age: 37 Year
  Sex: Female

DRUGS (7)
  1. SOLU-MEDROL [Suspect]
     Active Substance: METHYLPREDNISOLONE SODIUM SUCCINATE
     Indication: Immune thrombocytopenia
     Dosage: 500 MG
  2. PREDNISOLONE [Suspect]
     Active Substance: PREDNISOLONE
     Indication: Immune thrombocytopenia
     Dosage: 30 MG
  3. RAZO D [Concomitant]
     Indication: Immune thrombocytopenia
     Dosage: 20 MG (RABEPRAZOLE)
  4. RAZO D [Concomitant]
     Dosage: 30 MG (DOMPERIDONE)
  5. CALTRAN CT [Concomitant]
     Indication: Immune thrombocytopenia
     Dosage: UNK
  6. EPTOINE [Concomitant]
     Indication: Immune thrombocytopenia
     Dosage: 100 MG
  7. DAPSONE [Concomitant]
     Active Substance: DAPSONE
     Indication: Immune thrombocytopenia
     Dosage: 100 MG

REACTIONS (2)
  - Gingival bleeding [Unknown]
  - Disease recurrence [Unknown]
